FAERS Safety Report 5888491-0 (Version None)
Quarter: 2008Q3

REPORT INFORMATION
  Report Type: 
  Country: None (occurrence: None)
  Receive Date: 20080917
  Receipt Date: 20080917
  Transmission Date: 20090109
  Serious: Yes (Hospitalization)
  Sender: FDA-Public Use
  Company Number: None

PATIENT
  Sex: Male
  Weight: 95.2554 kg

DRUGS (3)
  1. DOCETAXEL [Suspect]
     Indication: PROSTATE CANCER
     Dosage: 75MG/M2 (160MG) GIVEN 08/27/08 IV (041) 20MG/M2 WEEKLY
     Route: 042
     Dates: start: 20080318, end: 20080506
  2. DOCETAXEL [Suspect]
     Dosage: 75MG/M2 Q 3 WKS
     Dates: start: 20080623, end: 20080827
  3. PREDNISONE [Concomitant]

REACTIONS (7)
  - DIARRHOEA [None]
  - DIZZINESS [None]
  - FEBRILE NEUTROPENIA [None]
  - HEADACHE [None]
  - MALAISE [None]
  - NAUSEA [None]
  - WHITE BLOOD CELL COUNT DECREASED [None]
